FAERS Safety Report 10036720 (Version 1)
Quarter: 2014Q1

REPORT INFORMATION
  Report Type: Spontaneous
  Country: DE (occurrence: DE)
  Receive Date: 20140326
  Receipt Date: 20140326
  Transmission Date: 20141002
  Serious: Yes (Life-Threatening, Hospitalization, Other)
  Sender: FDA-Public Use
  Company Number: GXKR2014DE001319

PATIENT
  Age: 42 Year
  Sex: Male

DRUGS (4)
  1. ZOPICLONE [Suspect]
     Dosage: 75 MG, ONCE/SINGLE
     Route: 049
     Dates: start: 200909
  2. DOXEPIN [Suspect]
     Dosage: 2 G, ONCE/SINGLE
     Route: 048
     Dates: start: 200909
  3. LORAZEPAM [Suspect]
     Dosage: 10 MG, ONCE/SINGLE
     Route: 048
     Dates: start: 200909
  4. ANTIPSYCHOTICS [Concomitant]
     Route: 065

REACTIONS (7)
  - Suicide attempt [Recovered/Resolved]
  - Major depression [Recovered/Resolved]
  - Apathy [Recovered/Resolved]
  - Decreased interest [Recovered/Resolved]
  - Depressed mood [Recovered/Resolved]
  - Polyneuropathy [Unknown]
  - Overdose [Unknown]
